FAERS Safety Report 7202996-1 (Version None)
Quarter: 2010Q4

REPORT INFORMATION
  Report Type: 
  Country: None (occurrence: None)
  Receive Date: 20101229
  Receipt Date: 20101220
  Transmission Date: 20110411
  Serious: Yes (Other)
  Sender: FDA-Public Use
  Company Number: JP-AMGEN-JPNCT2010008434

PATIENT

DRUGS (19)
  1. PANITUMUMAB [Suspect]
     Indication: COLORECTAL CANCER
     Dosage: 6 MG/KG, Q2WK
     Route: 041
     Dates: start: 20101111
  2. CAMPTOSAR [Suspect]
     Indication: COLORECTAL CANCER
     Route: 041
     Dates: start: 20101111, end: 20101111
  3. BLOPRESS [Concomitant]
     Route: 048
  4. TAKEPRON [Concomitant]
     Route: 048
  5. ANTIHISTAMINES [Concomitant]
     Indication: PROPHYLAXIS
     Route: 065
  6. CORTICOSTEROIDS [Concomitant]
     Indication: PROPHYLAXIS
     Route: 065
  7. TOPSYM [Concomitant]
     Route: 062
  8. SEROTONE [Concomitant]
     Route: 042
  9. ORGADRONE [Concomitant]
     Route: 042
  10. ALESION [Concomitant]
     Route: 048
  11. HANGE-SHASHIN-TO [Concomitant]
     Route: 048
  12. BETAMETHASONE [Concomitant]
     Route: 048
  13. LOPEMIN [Concomitant]
     Route: 048
  14. GOODMIN [Concomitant]
     Route: 048
  15. PHOSBLOCK [Concomitant]
     Route: 048
  16. CORINAEL L [Concomitant]
     Route: 048
  17. CHLOKALE [Concomitant]
     Route: 048
  18. NORVASC [Concomitant]
     Route: 048
  19. ONEALFA [Concomitant]
     Route: 048

REACTIONS (2)
  - NEUTROPHIL COUNT DECREASED [None]
  - PLATELET COUNT DECREASED [None]
